FAERS Safety Report 21963058 (Version 1)
Quarter: 2023Q1

REPORT INFORMATION
  Report Type: Spontaneous
  Country: US (occurrence: None)
  Receive Date: 20230205
  Receipt Date: 20230205
  Transmission Date: 20230418
  Serious: Yes (Life-Threatening, Hospitalization)
  Sender: FDA-Public Use
  Company Number: None

PATIENT
  Age: 53 Year
  Sex: Male

DRUGS (1)
  1. ALTEPLASE [Suspect]
     Active Substance: ALTEPLASE
     Indication: Frostbite
     Dates: start: 20221218, end: 20221218

REACTIONS (7)
  - Oesophagitis [None]
  - Erosive oesophagitis [None]
  - Hiatus hernia [None]
  - Headache [None]
  - Nausea [None]
  - Haematemesis [None]
  - Thrombosis [None]

NARRATIVE: CASE EVENT DATE: 20221218
